FAERS Safety Report 22888261 (Version 4)
Quarter: 2024Q1

REPORT INFORMATION
  Report Type: Other
  Country: JP (occurrence: JP)
  Receive Date: 20230831
  Receipt Date: 20240312
  Transmission Date: 20240410
  Serious: Yes (Death, Life-Threatening, Other)
  Sender: FDA-Public Use
  Company Number: JP-CHUGAI-2023031273AA

PATIENT
  Age: 53 Year
  Sex: Male

DRUGS (3)
  1. TECENTRIQ [Suspect]
     Active Substance: ATEZOLIZUMAB
     Indication: Small cell lung cancer
     Route: 041
  2. ETOPOSIDE [Concomitant]
     Active Substance: ETOPOSIDE
     Indication: Small cell lung cancer
     Dosage: UNK
     Route: 041
  3. CARBOPLATIN [Concomitant]
     Active Substance: CARBOPLATIN
     Indication: Small cell lung cancer
     Dosage: UNK
     Route: 041

REACTIONS (5)
  - Disease progression [Fatal]
  - Arrhythmia [Unknown]
  - Enterocutaneous fistula [Unknown]
  - Cardiac failure [Unknown]
  - Chronic respiratory failure [Unknown]
